FAERS Safety Report 6925836-4 (Version None)
Quarter: 2010Q3

REPORT INFORMATION
  Report Type: 
  Country: None (occurrence: None)
  Receive Date: 20100813
  Receipt Date: 20100813
  Transmission Date: 20110219
  Serious: Yes (Hospitalization)
  Sender: FDA-Public Use
  Company Number: None

PATIENT
  Age: 55 Year
  Sex: Male
  Weight: 97 kg

DRUGS (1)
  1. ADALIMUMAB [Suspect]
     Indication: PSORIASIS
     Dosage: SQ
     Route: 058
     Dates: start: 20091130

REACTIONS (1)
  - DEEP VEIN THROMBOSIS [None]
